FAERS Safety Report 19711945 (Version 2)
Quarter: 2021Q3

REPORT INFORMATION
  Report Type: Report from Study
  Country: None (occurrence: AU)
  Receive Date: 20210817
  Receipt Date: 20210901
  Transmission Date: 20211014
  Serious: Yes (Other)
  Sender: FDA-Public Use
  Company Number: AU-ABBVIE-21P-008-4042814-00

PATIENT
  Age: 85 Year
  Sex: Male

DRUGS (1)
  1. IBRUTINIB [Suspect]
     Active Substance: IBRUTINIB
     Indication: MARGINAL ZONE LYMPHOMA
     Route: 048

REACTIONS (4)
  - Leukostasis syndrome [Unknown]
  - Off label use [Unknown]
  - White blood cell count abnormal [Unknown]
  - Product use in unapproved indication [Unknown]
